FAERS Safety Report 10991392 (Version 1)
Quarter: 2015Q2

REPORT INFORMATION
  Report Type: Spontaneous
  Country: US (occurrence: US)
  Receive Date: 20150406
  Receipt Date: 20150406
  Transmission Date: 20150821
  Serious: No
  Sender: FDA-Public Use
  Company Number: US-PFIZER INC-2015117628

PATIENT
  Age: 54 Year
  Sex: Female

DRUGS (7)
  1. CIPRO [Suspect]
     Active Substance: CIPROFLOXACIN HYDROCHLORIDE
     Dosage: UNK
  2. DEPAKOTE [Suspect]
     Active Substance: DIVALPROEX SODIUM
     Dosage: UNK
  3. SODIUM SULFACETAMIDE/SULFUR [Suspect]
     Active Substance: SULFACETAMIDE SODIUM\SULFUR
     Dosage: UNK
  4. LEXAPRO [Suspect]
     Active Substance: ESCITALOPRAM OXALATE
     Dosage: UNK
  5. TRILEPTAL [Suspect]
     Active Substance: OXCARBAZEPINE
     Dosage: UNK
  6. BEE VENOM [Suspect]
     Active Substance: APIS MELLIFERA VENOM
  7. EFFEXOR XR [Suspect]
     Active Substance: VENLAFAXINE HYDROCHLORIDE
     Dosage: UNK

REACTIONS (1)
  - Drug hypersensitivity [Unknown]
